FAERS Safety Report 18332799 (Version 1)
Quarter: 2020Q4

REPORT INFORMATION
  Report Type: Spontaneous
  Country: PE (occurrence: PE)
  Receive Date: 20201001
  Receipt Date: 20201001
  Transmission Date: 20210113
  Serious: Yes (Other)
  Sender: FDA-Public Use
  Company Number: PE-ALVOGEN-2020-ALVOGEN-114751

PATIENT
  Age: 87 Year
  Sex: Female

DRUGS (2)
  1. IMIPENEM [Suspect]
     Active Substance: IMIPENEM
     Indication: ANTIBIOTIC THERAPY
  2. CLINDAMYCIN. [Suspect]
     Active Substance: CLINDAMYCIN
     Indication: ANTIBIOTIC THERAPY

REACTIONS (1)
  - Pathogen resistance [Recovered/Resolved]

NARRATIVE: CASE EVENT DATE: 2018
